FAERS Safety Report 8449936-5 (Version None)
Quarter: 2012Q2

REPORT INFORMATION
  Report Type: 
  Country: None (occurrence: None)
  Receive Date: 20120620
  Receipt Date: 20120615
  Transmission Date: 20120825
  Serious: Yes (Hospitalization)
  Sender: FDA-Public Use
  Company Number: PHHY2012JP052277

PATIENT
  Age: 77 Year
  Sex: Male

DRUGS (3)
  1. PLAVIX [Suspect]
     Route: 048
     Dates: start: 20111024
  2. PLETAL [Suspect]
     Dosage: 200 MG, DAILY
     Route: 048
  3. DIOVAN [Suspect]
     Indication: HYPERTENSION
     Dosage: 80 MG, DAILY
     Route: 048
     Dates: start: 20120312

REACTIONS (2)
  - MALAISE [None]
  - DRUG-INDUCED LIVER INJURY [None]
